FAERS Safety Report 9065042 (Version 2)
Quarter: 2013Q1

REPORT INFORMATION
  Report Type: Spontaneous
  Country: US (occurrence: US)
  Receive Date: 20130206
  Receipt Date: 20130301
  Transmission Date: 20140127
  Serious: Yes (Hospitalization, Other)
  Sender: FDA-Public Use
  Company Number: US-AMGEN-USASP2013006539

PATIENT
  Age: 40 Year
  Sex: Female
  Weight: 53.06 kg

DRUGS (17)
  1. ENBREL [Suspect]
     Indication: RHEUMATOID ARTHRITIS
     Dosage: 50 MG, QWK
     Route: 058
     Dates: start: 20120307, end: 20130112
  2. FE                                 /00023514/ [Concomitant]
     Dosage: 325 MG, UNK, 3 TABLETS DAILY
     Route: 048
  3. B COMPLEX 50 [Concomitant]
     Dosage: UNK UNK, QD, 1 TABLET DAILY
     Route: 048
  4. VITAMIN C                          /00008001/ [Concomitant]
     Dosage: 500 MG, QD
  5. ZANTAC [Concomitant]
     Dosage: 150 MG, QD, DAILY PRN
     Route: 048
  6. CLONAZEPAM [Concomitant]
     Dosage: 1 MG, UNK, TAKE ONE HALF TABLET IN AM AND 1/2 TABLET AT 16:00 HOUR AND HALF TABLET AT BEDTIME
  7. REMERON [Concomitant]
     Dosage: 45 MG, QHS
     Route: 048
  8. SYNTHROID [Concomitant]
     Indication: HYPOTHYROIDISM
     Dosage: 50 MUG, QD, ON EMPTY STOMACH
  9. TRAMADOL [Concomitant]
     Dosage: 50 MG, UNK ONE TO TWO TABLETS EVERY 6 HOURLY AS NEEDED, MAXIMUM EIGHT TABLETS PER DAY - DO NOT FILL
  10. POTASSIUM CHLORIDE [Concomitant]
     Dosage: 99 MG, QD
  11. VITAMIN D3 [Concomitant]
     Dosage: 400 UNIT, QD
     Route: 048
  12. DOCUSATE SODIUM [Concomitant]
     Dosage: 100 MG, QD
     Route: 048
  13. STRESS FORMULA                     /02361601/ [Concomitant]
     Dosage: 500 UNK, QD
     Route: 048
  14. METHOTREXATE [Concomitant]
     Dosage: 15 MG, QWK,
     Route: 048
  15. FOLIC ACID [Concomitant]
     Dosage: 1 MG, QD
     Route: 048
  16. CELEXA                             /00582602/ [Concomitant]
     Indication: ANXIETY
     Dosage: 40 MG, UNK
  17. CELEXA                             /00582602/ [Concomitant]
     Indication: DEPRESSION

REACTIONS (13)
  - Uterine haemorrhage [Recovered/Resolved]
  - Chest pain [Recovered/Resolved]
  - Uterine enlargement [Recovered/Resolved]
  - Menorrhagia [Recovered/Resolved]
  - Local swelling [Unknown]
  - Rheumatoid arthritis [Unknown]
  - Blood potassium decreased [Unknown]
  - Blood glucose decreased [Unknown]
  - White blood cell count increased [Unknown]
  - Drug effect incomplete [Unknown]
  - Pain in extremity [Unknown]
  - Musculoskeletal stiffness [Unknown]
  - Transaminases increased [Recovered/Resolved]
